FAERS Safety Report 7086424-5 (Version None)
Quarter: 2010Q4

REPORT INFORMATION
  Report Type: 
  Country: None (occurrence: None)
  Receive Date: 20101028
  Receipt Date: 20101013
  Transmission Date: 20110411
  Serious: Yes (Hospitalization)
  Sender: FDA-Public Use
  Company Number: 2010100027

PATIENT
  Age: 48 Year
  Sex: Female

DRUGS (18)
  1. TORSEMIDE [Suspect]
     Indication: ESSENTIAL HYPERTENSION
     Dosage: DOSE REDUCED (20 MG,3 IN 1 D),ORAL
     Route: 048
  2. METOJECT (METHOTREXATE SODIUM) [Suspect]
     Indication: RHEUMATOID ARTHRITIS
     Dosage: 0.1429 DOSAGE FORMS (1 DOSAGE FORMS,1 IN 1 WK),INTRAMUSCULAR
     Route: 030
     Dates: start: 20091201
  3. PREDNISOLONE [Suspect]
     Indication: RHEUMATOID ARTHRITIS
     Dosage: DOSE NOT CHANGED (10 MG,1 IN 1 D),ORAL
     Route: 048
     Dates: start: 20100401
  4. HUMIRA [Suspect]
     Indication: RHEUMATOID ARTHRITIS
     Dosage: 0.0714 DOSAGE FORMS (1 DOSAGE FORMS, 1 IN 2 WK),IV
     Route: 042
  5. MEFENAMIC ACID [Suspect]
     Indication: RHEUMATOID ARTHRITIS
     Dosage: (500 MG),ORAL
     Route: 048
     Dates: end: 20100901
  6. IBUPROFEN [Suspect]
     Indication: RHEUMATOID ARTHRITIS
     Dosage: 800 MG (800 MG,1 IN 1 D),ORAL
     Route: 048
     Dates: end: 20100901
  7. AUGMENTIN '125' [Suspect]
     Indication: UPPER RESPIRATORY TRACT INFECTION
     Dosage: (1 IN 1 D),ORAL
     Route: 048
     Dates: start: 20100801, end: 20100101
  8. DIFLUCAN [Suspect]
     Indication: CANDIDIASIS
     Dates: start: 20100901, end: 20100901
  9. ASPIRIN [Concomitant]
  10. BELOC (METOPROLOL TARTRATE, METOPROLOL SUCCINATE) [Concomitant]
  11. BEROCCA (ASCORBIC ACID, BIOTIN, CALCIUM CARBONATE, MAGNESIUM) [Concomitant]
  12. COZAAR [Concomitant]
  13. LEVOTHYROXINE SODIUM [Concomitant]
  14. JANUMET (METFORMIN HC1, SITAGLIPTIN PHOSPHATE) [Concomitant]
  15. POTASSIUM CHLORIDE [Concomitant]
  16. PANTOPRAZOLE SODIUM [Concomitant]
  17. ATORVASTATIN CALCIUM [Concomitant]
  18. FOLIC ACID [Concomitant]

REACTIONS (21)
  - ARRHYTHMIA [None]
  - ASPERGILLOSIS [None]
  - ATRIAL FIBRILLATION [None]
  - CANDIDIASIS [None]
  - CHEILITIS [None]
  - DIZZINESS [None]
  - DYSPHAGIA [None]
  - EPISTAXIS [None]
  - HAEMORRHAGIC DIATHESIS [None]
  - HYPOTENSION [None]
  - HYPOTONIA [None]
  - MYELODYSPLASTIC SYNDROME [None]
  - PALLOR [None]
  - PANCYTOPENIA [None]
  - PARANEOPLASTIC PEMPHIGUS [None]
  - PETECHIAE [None]
  - RASH MACULO-PAPULAR [None]
  - RENAL FAILURE ACUTE [None]
  - STOMATITIS [None]
  - SUPRAVENTRICULAR TACHYCARDIA [None]
  - UPPER RESPIRATORY TRACT INFECTION [None]
